FAERS Safety Report 20932238 (Version 1)
Quarter: 2022Q2

REPORT INFORMATION
  Report Type: Spontaneous
  Country: US (occurrence: None)
  Receive Date: 20220608
  Receipt Date: 20220608
  Transmission Date: 20220720
  Serious: No
  Sender: FDA-Public Use
  Company Number: US-ROCHE-2884035

PATIENT
  Sex: Male

DRUGS (1)
  1. ACTEMRA [Suspect]
     Active Substance: TOCILIZUMAB
     Indication: Product used for unknown indication
     Dosage: ONGOING:UNKNOWN?STRENGTH - 162 MG/0.9 ML
     Route: 065

REACTIONS (3)
  - Device difficult to use [Unknown]
  - Memory impairment [Unknown]
  - Illness [Unknown]
